FAERS Safety Report 5656854-4 (Version None)
Quarter: 2008Q1

REPORT INFORMATION
  Report Type: 
  Country: None (occurrence: None)
  Receive Date: 20080310
  Receipt Date: 20080226
  Transmission Date: 20080703
  Serious: Yes (Other)
  Sender: FDA-Public Use
  Company Number: US-AMGEN-QUU261813

PATIENT
  Sex: Female
  Weight: 55.8 kg

DRUGS (5)
  1. ENBREL [Suspect]
     Indication: ANKYLOSING SPONDYLITIS
     Route: 058
     Dates: start: 20001201
  2. INDOCIN [Concomitant]
     Route: 048
  3. TYLENOL (CAPLET) [Concomitant]
  4. VITAMIN TAB [Concomitant]
  5. IBUPROFEN [Concomitant]
     Route: 048

REACTIONS (5)
  - ANKYLOSING SPONDYLITIS [None]
  - DYSPNOEA [None]
  - IRITIS [None]
  - PREMATURE LABOUR [None]
  - PREMATURE RUPTURE OF MEMBRANES [None]
